FAERS Safety Report 18453954 (Version 1)
Quarter: 2020Q4

REPORT INFORMATION
  Report Type: Spontaneous
  Country: US (occurrence: US)
  Receive Date: 20201102
  Receipt Date: 20201102
  Transmission Date: 20210114
  Serious: Yes (Hospitalization, Other)
  Sender: FDA-Public Use
  Company Number: US-APOTEX-2020AP020752

PATIENT
  Age: 28 Year
  Sex: Female

DRUGS (1)
  1. METFORMIN HYDROCHLORIDE. [Suspect]
     Active Substance: METFORMIN HYDROCHLORIDE
     Indication: PRODUCT USED FOR UNKNOWN INDICATION
     Dosage: 50 DOSAGE FORM
     Route: 065

REACTIONS (10)
  - Respiratory failure [Recovering/Resolving]
  - Abdominal compartment syndrome [Recovering/Resolving]
  - Metabolic acidosis [Recovering/Resolving]
  - Acute respiratory distress syndrome [Recovering/Resolving]
  - Intentional overdose [Recovering/Resolving]
  - Shock [Recovering/Resolving]
  - Rhabdomyolysis [Recovering/Resolving]
  - Drug level increased [Recovering/Resolving]
  - Renal failure [Recovering/Resolving]
  - Haemodynamic instability [Recovering/Resolving]
